FAERS Safety Report 8690695 (Version 2)
Quarter: 2013Q2

REPORT INFORMATION
  Report Type: Spontaneous
  Country: US (occurrence: US)
  Receive Date: 20120727
  Receipt Date: 20130405
  Transmission Date: 20140414
  Serious: Yes (Life-Threatening)
  Sender: FDA-Public Use
  Company Number: US-ASTRAZENECA-2012SE00833

PATIENT
  Age: 27 Year
  Sex: Male
  Weight: 108.9 kg

DRUGS (17)
  1. SEROQUEL [Suspect]
     Route: 048
     Dates: start: 2004
  2. SEROQUEL [Suspect]
     Route: 048
     Dates: start: 2004, end: 2009
  3. SEROQUEL [Suspect]
     Route: 048
     Dates: start: 20040522
  4. SEROQUEL [Suspect]
     Route: 048
     Dates: start: 20071011
  5. AMBIEN/ZOLPIDEM [Concomitant]
     Dates: start: 200910
  6. AMBIEN/ZOLPIDEM [Concomitant]
     Dates: start: 20100114
  7. CITALOPRAM [Concomitant]
     Dates: start: 20100114
  8. CARBAMAZEPINE [Concomitant]
     Dates: start: 20100114
  9. HYDROCO/APAP [Concomitant]
     Dosage: 5-325
     Dates: start: 20100208
  10. DICLOFENAC [Concomitant]
     Dates: start: 20100209
  11. ISOMETH/APAP/DICHLO [Concomitant]
     Dates: start: 20100224
  12. CYCLOBENZAPRI [Concomitant]
     Dates: start: 20100301
  13. LEXAPRO [Concomitant]
     Dates: start: 200910
  14. ERYTHROMYCIN [Concomitant]
     Dates: start: 200910
  15. PERPHENAZINE [Concomitant]
     Route: 048
     Dates: start: 20070928
  16. DEPAKOTE [Concomitant]
     Route: 048
     Dates: start: 20071011
  17. FLUOXETINE [Concomitant]
     Route: 048
     Dates: start: 20071011

REACTIONS (2)
  - Type 1 diabetes mellitus [Unknown]
  - Malaise [Unknown]
